FAERS Safety Report 17562475 (Version 2)
Quarter: 2020Q2

REPORT INFORMATION
  Report Type: Spontaneous
  Country: CZ (occurrence: CZ)
  Receive Date: 20200319
  Receipt Date: 20200417
  Transmission Date: 20200713
  Serious: Yes (Other)
  Sender: FDA-Public Use
  Company Number: CZ-AMGEN-CZESP2020043323

PATIENT
  Sex: Female
  Weight: 70 kg

DRUGS (4)
  1. VECTIBIX [Suspect]
     Active Substance: PANITUMUMAB
     Indication: GASTROINTESTINAL ADENOCARCINOMA
     Dosage: UNK
     Route: 065
     Dates: start: 201809, end: 20190609
  2. LEUCOVORINE [Suspect]
     Active Substance: LEUCOVORIN
     Indication: GASTROINTESTINAL ADENOCARCINOMA
     Dosage: UNK
     Route: 065
     Dates: start: 201809, end: 2019
  3. OXALIPLATIN. [Concomitant]
     Active Substance: OXALIPLATIN
     Indication: GASTROINTESTINAL ADENOCARCINOMA
     Dosage: UNK
     Route: 065
     Dates: start: 201809, end: 2019
  4. FLUOROURACIL. [Suspect]
     Active Substance: FLUOROURACIL
     Indication: GASTROINTESTINAL ADENOCARCINOMA
     Dosage: UNK
     Route: 065
     Dates: start: 201809, end: 2019

REACTIONS (9)
  - Paraesthesia [Unknown]
  - Hydronephrosis [Unknown]
  - Post procedural oedema [Unknown]
  - Complication associated with device [Unknown]
  - Kidney congestion [Unknown]
  - Gastrointestinal toxicity [Recovered/Resolved]
  - Skin toxicity [Unknown]
  - Haematotoxicity [Recovered/Resolved]
  - Weight decreased [Recovered/Resolved]

NARRATIVE: CASE EVENT DATE: 2019
